FAERS Safety Report 4653025-5 (Version None)
Quarter: 2005Q2

REPORT INFORMATION
  Report Type: 
  Country: None (occurrence: None)
  Receive Date: 20050505
  Receipt Date: 20050426
  Transmission Date: 20051028
  Serious: Yes (Life-Threatening)
  Sender: FDA-Public Use
  Company Number: US-NOVOPROD-243765

PATIENT
  Age: 31 Year
  Sex: Female
  Weight: 71 kg

DRUGS (11)
  1. NOVOSEVEN [Suspect]
     Indication: OPERATIVE HAEMORRHAGE
     Dosage: 90 MCG/KG, Q2H
     Dates: start: 20030210, end: 20030220
  2. FRESH FROZEN PLASMA [Concomitant]
     Indication: OPERATIVE HAEMORRHAGE
     Dosage: 1 ML/KG, PRN (4 DOSES GIVEN)
     Dates: start: 20030207, end: 20030209
  3. PLATELETS [Concomitant]
     Indication: OPERATIVE HAEMORRHAGE
  4. CYTOXAN [Concomitant]
     Indication: IMMUNOSUPPRESSION
     Dosage: 14 MG/KG, WEEKLY
     Dates: start: 20030211, end: 20050222
  5. CORTICOSTEROID NOS [Concomitant]
     Indication: ILL-DEFINED DISORDER
  6. CHEMOTHERAPY NOS [Concomitant]
     Indication: NEOPLASM MALIGNANT
  7. ANALGESICS [Concomitant]
     Indication: ILL-DEFINED DISORDER
  8. ANTIHYPERTENSIVES [Concomitant]
     Indication: ILL-DEFINED DISORDER
  9. GASTROINTESTINAL MEDICATION NOS [Concomitant]
     Indication: ILL-DEFINED DISORDER
  10. ALLERGY MEDICATION [Concomitant]
     Indication: ILL-DEFINED DISORDER
  11. VITAMINS [Concomitant]
     Indication: ILL-DEFINED DISORDER

REACTIONS (1)
  - CEREBROVASCULAR ACCIDENT [None]
